FAERS Safety Report 9557580 (Version 3)
Quarter: 2013Q4

REPORT INFORMATION
  Report Type: Spontaneous
  Country: DE (occurrence: None)
  Receive Date: 20130923
  Receipt Date: 20131015
  Transmission Date: 20140711
  Serious: Yes (Disabling, Other)
  Sender: FDA-Public Use
  Company Number: AUR-APL-2013-07653

PATIENT
  Age: 73 Year
  Sex: Female

DRUGS (1)
  1. RAMIPRIL [Suspect]
     Indication: PRODUCT USED FOR UNKNOWN INDICATION
     Route: 048
     Dates: start: 20130826

REACTIONS (2)
  - Dysphagia [None]
  - Swollen tongue [None]
